FAERS Safety Report 8840964 (Version 3)
Quarter: 2012Q4

REPORT INFORMATION
  Report Type: Report from Study
  Country: GB (occurrence: GB)
  Receive Date: 20121015
  Receipt Date: 20121120
  Transmission Date: 20130627
  Serious: Yes (Hospitalization)
  Sender: FDA-Public Use
  Company Number: GB-PFIZER INC-2012247174

PATIENT
  Age: 71 Year
  Sex: Male
  Weight: 71.6 kg

DRUGS (3)
  1. AXITINIB [Suspect]
     Dosage: 5 mg, UNK
     Dates: start: 20120919, end: 20121001
  2. ALLOPURINOL [Concomitant]
     Indication: GOUT
     Dosage: 100 mg, 1x/day
     Route: 048
     Dates: start: 2002
  3. SIMVASTATIN [Concomitant]
     Indication: HYPERCHOLESTEROLEMIA
     Dosage: 40 mg, 1x/day
     Route: 048
     Dates: start: 2006

REACTIONS (2)
  - Pneumothorax [Recovered/Resolved]
  - Dyspnoea [Recovered/Resolved]
